FAERS Safety Report 4645739-8 (Version None)
Quarter: 2005Q2

REPORT INFORMATION
  Report Type: 
  Country: None (occurrence: None)
  Receive Date: 20050425
  Receipt Date: 20050414
  Transmission Date: 20051028
  Serious: Yes (Disabling)
  Sender: FDA-Public Use
  Company Number: 2005-066

PATIENT
  Sex: Female

DRUGS (2)
  1. PROPRANOLOL HCL [Suspect]
     Dosage: 10 MG, QD, PO
     Route: 048
     Dates: start: 20040101
  2. PROPRANOLOL HCL [Suspect]
     Dosage: 20 MG, BID, PO
     Route: 048

REACTIONS (8)
  - BLINDNESS [None]
  - EYE HAEMORRHAGE [None]
  - HYPERHIDROSIS [None]
  - HYPOGLYCAEMIA [None]
  - PALPITATIONS [None]
  - POOR PERIPHERAL CIRCULATION [None]
  - RENAL DISORDER [None]
  - VISION BLURRED [None]
